FAERS Safety Report 18199113 (Version 1)
Quarter: 2020Q3

REPORT INFORMATION
  Report Type: Spontaneous
  Country: TR (occurrence: TR)
  Receive Date: 20200826
  Receipt Date: 20200826
  Transmission Date: 20201103
  Serious: Yes (Other)
  Sender: FDA-Public Use
  Company Number: NVSC2020TR231991

PATIENT
  Age: 32 Year
  Sex: Male

DRUGS (3)
  1. LEPTICA [Concomitant]
     Indication: PRODUCT USED FOR UNKNOWN INDICATION
     Dosage: UNK
     Route: 065
  2. TRILEPTAL [Suspect]
     Active Substance: OXCARBAZEPINE
     Indication: EPILEPSY
     Dosage: 1 DF (1.5X 2)
     Route: 048
     Dates: start: 2010
  3. TOPAMAX [Concomitant]
     Active Substance: TOPIRAMATE
     Indication: PRODUCT USED FOR UNKNOWN INDICATION
     Route: 065

REACTIONS (4)
  - Epilepsy [Not Recovered/Not Resolved]
  - Disability [Not Recovered/Not Resolved]
  - Drug dependence [Not Recovered/Not Resolved]
  - Speech disorder [Not Recovered/Not Resolved]
